FAERS Safety Report 24744857 (Version 3)
Quarter: 2024Q4

REPORT INFORMATION
  Report Type: Report from Study
  Country: GB (occurrence: GB)
  Receive Date: 20241217
  Receipt Date: 20241224
  Transmission Date: 20250115
  Serious: Yes (Other)
  Sender: NOVARTIS
  Company Number: GB-002147023-NVSC2024GB233705

PATIENT
  Sex: Female

DRUGS (1)
  1. COSENTYX [Suspect]
     Active Substance: SECUKINUMAB
     Indication: Psoriatic arthropathy
     Dosage: 300 MG, QMO
     Route: 058
     Dates: start: 20241121

REACTIONS (6)
  - Lower respiratory tract infection [Recovered/Resolved]
  - Joint instability [Unknown]
  - Arthritis infective [Unknown]
  - Immune system disorder [Unknown]
  - Joint dislocation [Unknown]
  - Arthralgia [Unknown]
